FAERS Safety Report 25139270 (Version 2)
Quarter: 2025Q2

REPORT INFORMATION
  Report Type: Spontaneous
  Country: PL (occurrence: PL)
  Receive Date: 20250331
  Receipt Date: 20250506
  Transmission Date: 20250716
  Serious: Yes (Death)
  Sender: ABBVIE
  Company Number: PL-ABBVIE-6204059

PATIENT
  Age: 49 Year
  Sex: Male
  Weight: 110 kg

DRUGS (1)
  1. RINVOQ [Suspect]
     Active Substance: UPADACITINIB
     Indication: Rheumatoid arthritis
     Dosage: FORM STRENGTH- 15 MILLIGRAM
     Route: 048
     Dates: start: 20221116

REACTIONS (1)
  - Myocardial infarction [Fatal]
